FAERS Safety Report 17017090 (Version 2)
Quarter: 2021Q1

REPORT INFORMATION
  Report Type: Spontaneous
  Country: US (occurrence: US)
  Receive Date: 20191111
  Receipt Date: 20210218
  Transmission Date: 20210419
  Serious: Yes (Other)
  Sender: FDA-Public Use
  Company Number: US-SA-2019SA309330

PATIENT
  Age: 76 Year
  Sex: Female

DRUGS (1)
  1. VANDETANIB. [Suspect]
     Active Substance: VANDETANIB
     Indication: PAPILLARY THYROID CANCER
     Dosage: UNK
     Dates: start: 201607, end: 201801

REACTIONS (6)
  - Haemorrhage [Unknown]
  - Medical device site reaction [Unknown]
  - Impaired healing [Unknown]
  - Wound [Unknown]
  - Fistula [Unknown]
  - Postoperative wound complication [Unknown]

NARRATIVE: CASE EVENT DATE: 201801
